FAERS Safety Report 25525384 (Version 1)
Quarter: 2025Q3

REPORT INFORMATION
  Report Type: Spontaneous
  Country: US (occurrence: None)
  Receive Date: 20250705
  Receipt Date: 20250705
  Transmission Date: 20251021
  Serious: Yes (Hospitalization)
  Sender: FDA-CTU
  Company Number: None

PATIENT
  Age: 66 Year
  Sex: Female
  Weight: 111 kg

DRUGS (20)
  1. LEVOFLOXACIN [Suspect]
     Active Substance: LEVOFLOXACIN
     Indication: Urinary tract infection
     Dosage: 500 MG DAILY ORAL
     Route: 048
  2. ELIQUIS [Concomitant]
     Active Substance: APIXABAN
  3. ARIPIPRAZOLE [Concomitant]
     Active Substance: ARIPIPRAZOLE
  4. AMITRIPTYLINE [Concomitant]
     Active Substance: AMITRIPTYLINE
  5. CEFADROXIL [Concomitant]
     Active Substance: CEFADROXIL
  6. CIPROFLOXACIN [Concomitant]
     Active Substance: CIPROFLOXACIN
  7. CLOPIDOGREL [Concomitant]
     Active Substance: CLOPIDOGREL BISULFATE
  8. DEXAMETHASONE [Concomitant]
     Active Substance: DEXAMETHASONE
  9. DEXAMETHASONE [Concomitant]
     Active Substance: DEXAMETHASONE
  10. HYDROCODONE BITARTRATE AND ACETAMINOPHEN [Concomitant]
     Active Substance: ACETAMINOPHEN\HYDROCODONE BITARTRATE
  11. PANTOPRAZOLE [Concomitant]
     Active Substance: PANTOPRAZOLE
  12. PREDNISONE [Suspect]
     Active Substance: PREDNISONE
  13. PREGABALIN [Concomitant]
     Active Substance: PREGABALIN
  14. semiglutide  - pyridoxine [Concomitant]
  15. TRAMADOL [Concomitant]
     Active Substance: TRAMADOL
  16. TRAZODONE [Concomitant]
     Active Substance: TRAZODONE HYDROCHLORIDE
  17. VENLAFAXINE HYDROCHLORIDE [Concomitant]
     Active Substance: VENLAFAXINE HYDROCHLORIDE
  18. KEFLEX [Suspect]
     Active Substance: CEPHALEXIN
  19. AMOXICILLIN [Suspect]
     Active Substance: AMOXICILLIN
  20. BACTRIM [Suspect]
     Active Substance: SULFAMETHOXAZOLE\TRIMETHOPRIM

REACTIONS (2)
  - Urinary tract infection [None]
  - Tendon rupture [None]

NARRATIVE: CASE EVENT DATE: 20250613
